FAERS Safety Report 10969588 (Version 2)
Quarter: 2015Q2

REPORT INFORMATION
  Report Type: Report from Study
  Country: US (occurrence: US)
  Receive Date: 20150331
  Receipt Date: 20150504
  Transmission Date: 20150821
  Serious: Yes (Hospitalization)
  Sender: FDA-Public Use
  Company Number: US-BIOGENIDEC-2015BI039437

PATIENT
  Age: 37 Year
  Sex: Female

DRUGS (6)
  1. TECFIDERA [Suspect]
     Active Substance: DIMETHYL FUMARATE
     Indication: MULTIPLE SCLEROSIS
     Route: 048
     Dates: start: 201412
  2. BACLOFEN. [Concomitant]
     Active Substance: BACLOFEN
  3. CATAFLAM [Concomitant]
     Active Substance: DICLOFENAC POTASSIUM
  4. LYRICA [Concomitant]
     Active Substance: PREGABALIN
  5. MELATONIN [Concomitant]
     Active Substance: MELATONIN
  6. DITROPAN XL [Concomitant]
     Active Substance: OXYBUTYNIN CHLORIDE

REACTIONS (1)
  - Cholecystectomy [Recovered/Resolved]

NARRATIVE: CASE EVENT DATE: 20150318
